FAERS Safety Report 20781026 (Version 2)
Quarter: 2022Q2

REPORT INFORMATION
  Report Type: Spontaneous
  Country: US (occurrence: None)
  Receive Date: 20220504
  Receipt Date: 20220610
  Transmission Date: 20220720
  Serious: No
  Sender: FDA-Public Use
  Company Number: 2022A155309

PATIENT
  Sex: Male
  Weight: 81.6 kg

DRUGS (1)
  1. BUDESONIDE\FORMOTEROL\GLYCOPYRRONIUM [Suspect]
     Active Substance: BUDESONIDE\FORMOTEROL\GLYCOPYRRONIUM
     Indication: Chronic obstructive pulmonary disease
     Dosage: 160/7.2/5.0MCG, 2 PUFFS TWICE DAILY
     Route: 055
     Dates: start: 2021

REACTIONS (3)
  - Incorrect dose administered by device [Unknown]
  - Drug delivery system issue [Unknown]
  - Device use issue [Unknown]
